FAERS Safety Report 17219613 (Version 2)
Quarter: 2020Q3

REPORT INFORMATION
  Report Type: Spontaneous
  Country: US (occurrence: US)
  Receive Date: 20191231
  Receipt Date: 20200810
  Transmission Date: 20201102
  Serious: Yes (Other)
  Sender: FDA-Public Use
  Company Number: US-GILEAD-2019-0444835

PATIENT
  Sex: Male
  Weight: 56.69 kg

DRUGS (28)
  1. COMPLERA [Suspect]
     Active Substance: EMTRICITABINE\RILPIVIRINE HYDROCHLORIDE\TENOFOVIR DISOPROXIL FUMARATE
     Indication: HIV INFECTION
     Dosage: UNK
     Route: 048
     Dates: start: 20140617, end: 201406
  2. STRIBILD [Suspect]
     Active Substance: COBICISTAT\ELVITEGRAVIR\EMTRICITABINE\TENOFOVIR DISOPROXIL FUMARATE
     Indication: HIV INFECTION
     Route: 065
  3. CRIXIVAN [Concomitant]
     Active Substance: INDINAVIR SULFATE
  4. FUZEON [Concomitant]
     Active Substance: ENFUVIRTIDE
  5. KALETRA [Concomitant]
     Active Substance: LOPINAVIR\RITONAVIR
  6. GENVOYA [Concomitant]
     Active Substance: COBICISTAT\ELVITEGRAVIR\EMTRICITABINE\TENOFOVIR ALAFENAMIDE FUMARATE
  7. ISENTRESS [Concomitant]
     Active Substance: RALTEGRAVIR POTASSIUM
  8. LEXIVA [Concomitant]
     Active Substance: FOSAMPRENAVIR CALCIUM
  9. NORVIR [Concomitant]
     Active Substance: RITONAVIR
  10. COLESTIPOL [Concomitant]
     Active Substance: COLESTIPOL
  11. EPIVIR [Concomitant]
     Active Substance: LAMIVUDINE
  12. PREZISTA [Concomitant]
     Active Substance: DARUNAVIR ETHANOLATE
  13. BENZTROPINE [BENZATROPINE] [Concomitant]
     Active Substance: BENZTROPINE
  14. VIREAD [Suspect]
     Active Substance: TENOFOVIR DISOPROXIL FUMARATE
     Indication: HIV INFECTION
     Dosage: UNK
     Route: 065
     Dates: start: 2001, end: 2005
  15. TRUVADA [Suspect]
     Active Substance: EMTRICITABINE\TENOFOVIR DISOPROXIL FUMARATE
     Indication: HIV INFECTION
     Dosage: UNK
     Route: 048
     Dates: start: 20080128, end: 201606
  16. DESCOVY [Concomitant]
     Active Substance: EMTRICITABINE\TENOFOVIR ALAFENAMIDE FUMARATE
  17. REYATAZ [Concomitant]
     Active Substance: ATAZANAVIR SULFATE
  18. SELZENTRY [Concomitant]
     Active Substance: MARAVIROC
  19. EMTRIVA [Concomitant]
     Active Substance: EMTRICITABINE
  20. INTELENCE [Concomitant]
     Active Substance: ETRAVIRINE
  21. TIVICAY [Concomitant]
     Active Substance: DOLUTEGRAVIR SODIUM
  22. VIDEX [Concomitant]
     Active Substance: DIDANOSINE
  23. ZIAGEN [Concomitant]
     Active Substance: ABACAVIR SULFATE
  24. ZERIT [Concomitant]
     Active Substance: STAVUDINE
  25. RESCRIPTOR [Concomitant]
     Active Substance: DELAVIRDINE MESYLATE
  26. RETROVIR [Concomitant]
     Active Substance: ZIDOVUDINE
  27. TRIUMEQ [Concomitant]
     Active Substance: ABACAVIR SULFATE\DOLUTEGRAVIR SODIUM\LAMIVUDINE
  28. HALOPERIDOL. [Concomitant]
     Active Substance: HALOPERIDOL

REACTIONS (7)
  - Pain [Not Recovered/Not Resolved]
  - Chronic kidney disease [Not Recovered/Not Resolved]
  - Depression [Not Recovered/Not Resolved]
  - Economic problem [Not Recovered/Not Resolved]
  - Anhedonia [Not Recovered/Not Resolved]
  - Emotional distress [Not Recovered/Not Resolved]
  - Anxiety [Not Recovered/Not Resolved]

NARRATIVE: CASE EVENT DATE: 2014
